FAERS Safety Report 11713460 (Version 1)
Quarter: 2015Q4

REPORT INFORMATION
  Report Type: Spontaneous
  Country: US (occurrence: None)
  Receive Date: 20151103
  Receipt Date: 20151103
  Transmission Date: 20160304
  Serious: Yes (Hospitalization)
  Sender: FDA-Public Use
  Company Number: AUR-APL-2015-02346

PATIENT
  Age: 59 Year
  Sex: Female

DRUGS (1)
  1. METOPROLOL TARTRATE TABLETS USP 50 MG (METOPROLOL) FILM-COATED TABLET, 50MG [Suspect]
     Active Substance: METOPROLOL TARTRATE
     Indication: PRODUCT USED FOR UNKNOWN INDICATION
     Route: 048

REACTIONS (1)
  - Bradycardia [None]

NARRATIVE: CASE EVENT DATE: 20141228
